FAERS Safety Report 15230023 (Version 2)
Quarter: 2019Q3

REPORT INFORMATION
  Report Type: Report from Study
  Country: None (occurrence: DE)
  Receive Date: 20180802
  Receipt Date: 20190709
  Transmission Date: 20191004
  Serious: Yes (Other)
  Sender: FDA-Public Use
  Company Number: DE-ABBVIE-18K-062-2423383-00

PATIENT
  Sex: Female

DRUGS (1)
  1. HUMIRA [Suspect]
     Active Substance: ADALIMUMAB
     Indication: COLITIS ULCERATIVE
     Route: 058
     Dates: start: 201311, end: 201806

REACTIONS (3)
  - Photophobia [Recovering/Resolving]
  - Superficial spreading melanoma stage unspecified [Not Recovered/Not Resolved]
  - Melanocytic naevus [Unknown]

NARRATIVE: CASE EVENT DATE: 2014
